FAERS Safety Report 4999913-1 (Version None)
Quarter: 2006Q2

REPORT INFORMATION
  Report Type: 
  Country: None (occurrence: None)
  Receive Date: 20060509
  Receipt Date: 20060426
  Transmission Date: 20061013
  Serious: Yes (Congenital Anomaly)
  Sender: FDA-Public Use
  Company Number: GB200604004344

PATIENT

DRUGS (6)
  1. FLUOXETINE HCL [Suspect]
     Dosage: TRANSPLACENTAL
     Route: 064
  2. ESCITALOPRAM (ESCITALOPRAM) [Concomitant]
  3. DIAZEPAM [Concomitant]
  4. FOLIC ACID [Concomitant]
  5. PEPTAC (CALCIUM CARBONATE, SODIUM ALGINATE, SODIUM BICARBONATE) [Concomitant]
  6. CEPHALEXIN [Concomitant]

REACTIONS (4)
  - ANOTIA [None]
  - CONGENITAL ANOMALY [None]
  - DRUG EXPOSURE DURING PREGNANCY [None]
  - PREGNANCY [None]
